FAERS Safety Report 10719259 (Version 1)
Quarter: 2015Q1

REPORT INFORMATION
  Report Type: Spontaneous
  Country: US (occurrence: US)
  Receive Date: 20150119
  Receipt Date: 20150119
  Transmission Date: 20150721
  Serious: No
  Sender: FDA-Public Use
  Company Number: US-UNITED THERAPEUTICS-UNT-2014-009998

PATIENT
  Sex: Female
  Weight: 81.41 kg

DRUGS (3)
  1. ADCIRCA [Concomitant]
     Active Substance: TADALAFIL
     Indication: PRODUCT USED FOR UNKNOWN INDICATION
  2. LETAIRIS [Suspect]
     Active Substance: AMBRISENTAN
     Indication: PRODUCT USED FOR UNKNOWN INDICATION
     Dosage: 10 MG, QD
     Route: 065
     Dates: start: 20130204
  3. TYVASO [Suspect]
     Active Substance: TREPROSTINIL
     Indication: PULMONARY ARTERIAL HYPERTENSION
     Dosage: 18-54 MICROGRAMS, QID
     Dates: start: 20141007

REACTIONS (8)
  - Migraine [Unknown]
  - Nausea [Unknown]
  - Vomiting [Unknown]
  - Throat irritation [Unknown]
  - Retching [Unknown]
  - Dyspnoea [Unknown]
  - Headache [Unknown]
  - Chest pain [Unknown]

NARRATIVE: CASE EVENT DATE: 2014
